FAERS Safety Report 7523048-7 (Version None)
Quarter: 2011Q2

REPORT INFORMATION
  Report Type: 
  Country: None (occurrence: None)
  Receive Date: 20110603
  Receipt Date: 20110520
  Transmission Date: 20111010
  Serious: No
  Sender: FDA-Public Use
  Company Number: US-B.I. PHARMACEUTICALS,INC./RIDGEFIELD-2011-BP-13712BP

PATIENT
  Sex: Female

DRUGS (10)
  1. MIRAPEX [Suspect]
     Indication: RESTLESS LEGS SYNDROME
     Dosage: 3 MG
     Route: 048
     Dates: start: 20010101
  2. LEVEMIR [Concomitant]
     Indication: DIABETES MELLITUS
     Dosage: 125 U
     Route: 058
  3. NORVASC [Concomitant]
     Indication: HYPERTENSION
     Route: 048
  4. METFORMIN HCL [Concomitant]
     Indication: DIABETES MELLITUS
     Dosage: 100 MG
     Route: 048
  5. PAXIL [Concomitant]
     Indication: DEPRESSION
     Dosage: 60 MG
     Route: 048
  6. TRAMADOL HCL [Concomitant]
     Dosage: 200 MG
     Route: 048
  7. REMERON [Concomitant]
     Indication: INSOMNIA
     Route: 048
  8. NOVOLOG [Concomitant]
     Indication: DIABETES MELLITUS
     Route: 058
  9. LAMICTAL [Concomitant]
     Indication: DEPRESSION
     Dosage: 25 MG
     Route: 048
  10. COZAAR [Concomitant]
     Indication: HYPERTENSION
     Dosage: 100 MG
     Route: 048

REACTIONS (2)
  - PAIN IN EXTREMITY [None]
  - RESTLESS LEGS SYNDROME [None]
